FAERS Safety Report 6682766-3 (Version None)
Quarter: 2010Q2

REPORT INFORMATION
  Report Type: 
  Country: None (occurrence: None)
  Receive Date: 20100415
  Receipt Date: 20100323
  Transmission Date: 20101027
  Serious: Yes (Death, Other)
  Sender: FDA-Public Use
  Company Number: AE-PFIZER INC-2010041015

PATIENT
  Age: 60 Year
  Sex: Male

DRUGS (1)
  1. SUTENT [Suspect]
     Indication: METASTATIC RENAL CELL CARCINOMA
     Dosage: UNK
     Dates: start: 20090401, end: 20090801

REACTIONS (5)
  - ANAEMIA [None]
  - ASTHENIA [None]
  - DEATH [None]
  - RASH [None]
  - STOMATITIS [None]
